FAERS Safety Report 5429421-5 (Version None)
Quarter: 2007Q3

REPORT INFORMATION
  Report Type: 
  Country: None (occurrence: None)
  Receive Date: 20070829
  Receipt Date: 20070822
  Transmission Date: 20080115
  Serious: Yes (Other)
  Sender: FDA-Public Use
  Company Number: JP-MERCK-0707USA03638

PATIENT
  Age: 40 Year
  Sex: Female

DRUGS (7)
  1. SINGULAIR [Suspect]
     Indication: ASTHMA
     Route: 048
     Dates: start: 20070621, end: 20070715
  2. SINGULAIR [Suspect]
     Indication: COUGH
     Route: 048
     Dates: start: 20070621, end: 20070715
  3. DASEN [Concomitant]
     Indication: BRONCHITIS
     Route: 048
     Dates: start: 20070621, end: 20070715
  4. THEO-DUR [Suspect]
     Indication: ASTHMA
     Route: 048
     Dates: start: 20070711, end: 20070715
  5. THEO-DUR [Suspect]
     Indication: COUGH
     Route: 048
     Dates: start: 20070711, end: 20070715
  6. PASETOCIN [Suspect]
     Indication: BRONCHITIS
     Route: 048
     Dates: start: 20070708, end: 20070712
  7. MUCODYNE [Concomitant]
     Indication: BRONCHITIS
     Route: 048
     Dates: start: 20070621, end: 20070704

REACTIONS (1)
  - DRUG ERUPTION [None]
